FAERS Safety Report 13899169 (Version 1)
Quarter: 2017Q3

REPORT INFORMATION
  Report Type: Spontaneous
  Country: US (occurrence: US)
  Receive Date: 20170823
  Receipt Date: 20170823
  Transmission Date: 20171127
  Serious: Yes (Hospitalization, Other)
  Sender: FDA-Public Use
  Company Number: US-JAZZ-JPI-P-019615

PATIENT
  Age: 26 Year
  Sex: Female
  Weight: 111.36 kg

DRUGS (3)
  1. XYREM [Suspect]
     Active Substance: SODIUM OXYBATE
     Indication: NARCOLEPSY
     Dosage: UNK
     Route: 048
  2. UNSPECIFIED MIGRAINE MEDICATION [Concomitant]
     Indication: MIGRAINE
  3. XYREM [Suspect]
     Active Substance: SODIUM OXYBATE
     Indication: CATAPLEXY
     Dosage: 2.25G, BID
     Route: 048
     Dates: start: 20120130, end: 20120131

REACTIONS (4)
  - Suicidal ideation [Recovered/Resolved]
  - Sleep apnoea syndrome [Not Recovered/Not Resolved]
  - Sleep disorder [Unknown]
  - Depression [Unknown]

NARRATIVE: CASE EVENT DATE: 20120130
